FAERS Safety Report 5388032-0 (Version None)
Quarter: 2007Q3

REPORT INFORMATION
  Report Type: 
  Country: None (occurrence: None)
  Receive Date: 20070716
  Receipt Date: 20070706
  Transmission Date: 20080115
  Serious: Yes (Hospitalization)
  Sender: FDA-Public Use
  Company Number: PHEH2007US05108

PATIENT
  Age: 51 Year
  Sex: Female

DRUGS (8)
  1. ZELNORM [Suspect]
     Indication: IRRITABLE BOWEL SYNDROME
     Dosage: UNK, PRN
     Route: 048
  2. ZELNORM [Suspect]
     Dosage: 6 MG, BID
     Route: 048
     Dates: start: 20050101, end: 20070101
  3. HYDROCHLOROTHIAZIDE [Concomitant]
     Indication: HYPERTENSION
  4. ANTITUSSIVES [Concomitant]
     Indication: COUGH
  5. NEURONTIN [Concomitant]
  6. HORMONES NOS [Concomitant]
  7. VICODIN [Concomitant]
  8. MUSCLE RELAXANTS [Concomitant]

REACTIONS (4)
  - ABDOMINAL DISTENSION [None]
  - CHEST PAIN [None]
  - DYSPNOEA [None]
  - WHEEZING [None]
